FAERS Safety Report 9744838 (Version 1)
Quarter: 2013Q4

REPORT INFORMATION
  Report Type: Report from Study
  Country: GR (occurrence: GR)
  Receive Date: 20131211
  Receipt Date: 20131211
  Transmission Date: 20140711
  Serious: Yes (Other)
  Sender: FDA-Public Use
  Company Number: GR-ROCHE-1311427

PATIENT
  Sex: Female

DRUGS (4)
  1. TRASTUZUMAB EMTANSINE [Suspect]
     Indication: BREAST CANCER METASTATIC
     Route: 065
     Dates: start: 20130219
  2. IDEOS [Concomitant]
     Dosage: DAILY DOSE: 500MG+400IU
     Route: 065
  3. LIPITOR [Concomitant]
     Route: 065
  4. LEXOTANIL [Concomitant]
     Route: 065

REACTIONS (1)
  - Hepatic enzyme increased [Unknown]
